FAERS Safety Report 4547311-7 (Version None)
Quarter: 2005Q1

REPORT INFORMATION
  Report Type: 
  Country: None (occurrence: None)
  Receive Date: 20050105
  Receipt Date: 20041214
  Transmission Date: 20050727
  Serious: Yes (Death)
  Sender: FDA-Public Use
  Company Number: US_0412109582

PATIENT
  Sex: Male

DRUGS (1)
  1. ZYPREXA [Suspect]

REACTIONS (6)
  - ABDOMINAL DISTENSION [None]
  - DIABETES MELLITUS INADEQUATE CONTROL [None]
  - HAEMATURIA [None]
  - PANCREATITIS [None]
  - VOMITING [None]
  - WEIGHT INCREASED [None]
